FAERS Safety Report 7090095-1 (Version None)
Quarter: 2010Q4

REPORT INFORMATION
  Report Type: 
  Country: None (occurrence: None)
  Receive Date: 20101105
  Receipt Date: 20101105
  Transmission Date: 20110411
  Serious: Yes (Other)
  Sender: FDA-Public Use
  Company Number: None

PATIENT
  Sex: Female
  Weight: 73.2 kg

DRUGS (3)
  1. ZOLPIDEM [Suspect]
     Indication: MAJOR DEPRESSION
     Dosage: 10MG DAILY AT BEDTIME BY MOUTH 047
     Route: 048
     Dates: start: 20071024, end: 20080407
  2. ZOLPIDEM [Suspect]
     Indication: SLEEP DISORDER
     Dosage: 10MG DAILY AT BEDTIME BY MOUTH 047
     Route: 048
     Dates: start: 20071024, end: 20080407
  3. EFFEXOR [Concomitant]

REACTIONS (2)
  - ABNORMAL SLEEP-RELATED EVENT [None]
  - AMNESIA [None]
